FAERS Safety Report 12590632 (Version 1)
Quarter: 2016Q3

REPORT INFORMATION
  Report Type: Spontaneous
  Country: IN (occurrence: IN)
  Receive Date: 20160726
  Receipt Date: 20160726
  Transmission Date: 20161109
  Serious: No
  Sender: FDA-Public Use
  Company Number: IN-LUPIN PHARMACEUTICALS INC.-E2B_00005508

PATIENT
  Age: 24 Year
  Sex: Male

DRUGS (2)
  1. LEVOFLOXACIN (L-CIN LU.) [Suspect]
     Active Substance: LEVOFLOXACIN
     Indication: COUGH
     Route: 048
     Dates: start: 20160517
  2. TUSQ-DX [Concomitant]
     Indication: COUGH
     Dosage: 4 TEASPOON
     Route: 048

REACTIONS (1)
  - Asthenia [Not Recovered/Not Resolved]

NARRATIVE: CASE EVENT DATE: 20160518
